FAERS Safety Report 21303626 (Version 2)
Quarter: 2022Q3

REPORT INFORMATION
  Report Type: Spontaneous
  Country: CN (occurrence: None)
  Receive Date: 20220907
  Receipt Date: 20220909
  Transmission Date: 20221027
  Serious: Yes (Hospitalization)
  Sender: FDA-Public Use
  Company Number: 2022A309622

PATIENT
  Age: 52 Year
  Sex: Male
  Weight: 72 kg

DRUGS (2)
  1. TICAGRELOR [Suspect]
     Active Substance: TICAGRELOR
     Indication: Coronary artery disease
     Route: 048
     Dates: start: 20220209, end: 20220810
  2. ASPIRIN [Suspect]
     Active Substance: ASPIRIN
     Indication: Coronary artery disease
     Route: 048
     Dates: start: 20220209, end: 20220810

REACTIONS (4)
  - Gastritis erosive [Unknown]
  - Melaena [Recovering/Resolving]
  - Gastrointestinal haemorrhage [Unknown]
  - Helicobacter test positive [Unknown]

NARRATIVE: CASE EVENT DATE: 20220803
